FAERS Safety Report 14787791 (Version 1)
Quarter: 2018Q2

REPORT INFORMATION
  Report Type: Spontaneous
  Country: US (occurrence: US)
  Receive Date: 20180422
  Receipt Date: 20180422
  Transmission Date: 20180711
  Serious: No
  Sender: FDA-Public Use
  Company Number: US-ASTRAZENECA-2018SE38693

PATIENT
  Sex: Female
  Weight: 49 kg

DRUGS (5)
  1. ALBUTEROL. [Concomitant]
     Active Substance: ALBUTEROL
  2. SYMBICORT [Suspect]
     Active Substance: BUDESONIDE\FORMOTEROL FUMARATE DIHYDRATE
     Indication: CHRONIC OBSTRUCTIVE PULMONARY DISEASE
     Dosage: 160/4.5 UG, 2 PUFFS IN THE MORNING AND 2 PUFFS IN THE EVENING
     Route: 055
     Dates: start: 2018
  3. CHEMO [Concomitant]
     Active Substance: UNSPECIFIED INGREDIENT
  4. CARDIZEM CD [Concomitant]
     Active Substance: DILTIAZEM HYDROCHLORIDE
     Indication: CARDIAC DISORDER
  5. SYMBICORT [Suspect]
     Active Substance: BUDESONIDE\FORMOTEROL FUMARATE DIHYDRATE
     Indication: EMPHYSEMA
     Dosage: 160/4.5 UG, 2 PUFFS IN THE MORNING AND 2 PUFFS IN THE EVENING
     Route: 055
     Dates: start: 2018

REACTIONS (5)
  - Intentional product misuse [Unknown]
  - Anxiety [Unknown]
  - Dyspnoea [Unknown]
  - Neck pain [Unknown]
  - Product taste abnormal [Unknown]
